FAERS Safety Report 9393523 (Version 1)
Quarter: 2013Q3

REPORT INFORMATION
  Report Type: Spontaneous
  Country: US (occurrence: US)
  Receive Date: 20130710
  Receipt Date: 20130710
  Transmission Date: 20140515
  Serious: Yes (Other)
  Sender: FDA-Public Use
  Company Number: US-BRISTOL-MYERS SQUIBB COMPANY-19032903

PATIENT
  Age: 69 Year
  Sex: Male
  Weight: 98.86 kg

DRUGS (3)
  1. BYDUREON [Suspect]
     Indication: TYPE 2 DIABETES MELLITUS
     Dosage: 15NV12-03JAN13?RESTARTED-FEB13
     Dates: start: 20121115
  2. METFORMIN HCL [Suspect]
  3. BROMOCRIPTINE MESYLATE [Suspect]

REACTIONS (4)
  - Syncope [Recovering/Resolving]
  - Blood glucose decreased [Recovering/Resolving]
  - Calculus urinary [Unknown]
  - Injection site mass [Unknown]
